FAERS Safety Report 5748455-4 (Version None)
Quarter: 2008Q2

REPORT INFORMATION
  Report Type: 
  Country: None (occurrence: None)
  Receive Date: 20080521
  Receipt Date: 20080515
  Transmission Date: 20081010
  Serious: Yes (Death)
  Sender: FDA-Public Use
  Company Number: 2008SP007218

PATIENT
  Sex: Female

DRUGS (4)
  1. INTEGRILIN [Suspect]
     Indication: CATHETERISATION CARDIAC
     Dosage: ONCE INBO; INDRP
     Dates: start: 20080401, end: 20080401
  2. INTEGRILIN [Suspect]
     Indication: CATHETERISATION CARDIAC
     Dosage: ONCE INBO; INDRP
     Dates: start: 20080401, end: 20080401
  3. PLAVIX [Concomitant]
  4. ASPIRIN [Concomitant]

REACTIONS (4)
  - BRONCHIAL HAEMORRHAGE [None]
  - CARDIO-RESPIRATORY ARREST [None]
  - DYSPNOEA [None]
  - TRACHEAL HAEMORRHAGE [None]
